FAERS Safety Report 8047223-0 (Version None)
Quarter: 2012Q1

REPORT INFORMATION
  Report Type: 
  Country: None (occurrence: None)
  Receive Date: 20120116
  Receipt Date: 20120111
  Transmission Date: 20120608
  Serious: Yes (Death, Hospitalization, Other)
  Sender: FDA-Public Use
  Company Number: US-ASTELLAS-2011US008027

PATIENT
  Age: 64 Year
  Sex: Male
  Weight: 61 kg

DRUGS (2)
  1. ERLOTINIB HYDROCHLORIDE [Suspect]
     Indication: NON-SMALL CELL LUNG CANCER
     Dosage: 100 MG, UID/QD
     Route: 048
     Dates: start: 20110928, end: 20111115
  2. AZD6244 HYDROGEN SULFATE [Suspect]
     Indication: NON-SMALL CELL LUNG CANCER
     Dosage: 150 MG, UID/QD
     Route: 048
     Dates: start: 20110928, end: 20111116

REACTIONS (16)
  - HAEMOPTYSIS [None]
  - WEIGHT DECREASED [None]
  - FLUID OVERLOAD [None]
  - FALL [None]
  - DISEASE PROGRESSION [None]
  - HYPOXIA [None]
  - EPISTAXIS [None]
  - PYREXIA [None]
  - INCORRECT DOSE ADMINISTERED [None]
  - ANAEMIA [None]
  - FATIGUE [None]
  - DEATH [None]
  - MENTAL STATUS CHANGES [None]
  - DECREASED APPETITE [None]
  - METASTASES TO BONE [None]
  - CHEST PAIN [None]
